FAERS Safety Report 9285916 (Version 1)
Quarter: 2013Q2

REPORT INFORMATION
  Report Type: Spontaneous
  Country: FR (occurrence: FR)
  Receive Date: 20130513
  Receipt Date: 20130513
  Transmission Date: 20140414
  Serious: Yes (Hospitalization)
  Sender: FDA-Public Use
  Company Number: FR-SANOFI-AVENTIS-S/FRZOL95004

PATIENT
  Age: 5 Year
  Sex: Male
  Weight: 17 kg

DRUGS (1)
  1. STILNOX [Suspect]
     Indication: PRODUCT USED FOR UNKNOWN INDICATION
     Dosage: UNIT DOSE: 10 MG, TAKEN 1 OR 2 TABLETS
     Route: 048
     Dates: start: 19940718, end: 19940718

REACTIONS (9)
  - Blood pressure decreased [Recovered/Resolved]
  - Accidental overdose [Unknown]
  - Oxygen saturation decreased [Recovered/Resolved]
  - Respiratory rate increased [Recovered/Resolved]
  - Hypotonia [Recovered/Resolved]
  - Body temperature decreased [Recovered/Resolved]
  - Somnolence [Recovered/Resolved]
  - Vomiting [Recovered/Resolved]
  - Confusional state [Recovered/Resolved]
